FAERS Safety Report 11002429 (Version 1)
Quarter: 2015Q2

REPORT INFORMATION
  Report Type: Spontaneous
  Country: US (occurrence: US)
  Receive Date: 20150408
  Receipt Date: 20150408
  Transmission Date: 20150821
  Serious: No
  Sender: FDA-Public Use
  Company Number: US-GLAXOSMITHKLINE-US2015044345

PATIENT
  Sex: Male

DRUGS (3)
  1. FISH OIL SUPPLEMENT [Concomitant]
  2. BENZODIAZEPINE [Concomitant]
     Active Substance: BENZODIAZEPINE
  3. VENTOLIN HFA [Suspect]
     Active Substance: ALBUTEROL SULFATE
     Indication: BRONCHITIS CHRONIC
     Dosage: 1 PUFF(S), PRN
     Route: 055

REACTIONS (2)
  - Feeling jittery [Unknown]
  - Device use error [Unknown]
